FAERS Safety Report 5959220-7 (Version None)
Quarter: 2008Q4

REPORT INFORMATION
  Report Type: 
  Country: None (occurrence: None)
  Receive Date: 20081120
  Receipt Date: 20080805
  Transmission Date: 20090506
  Serious: Yes (Hospitalization)
  Sender: FDA-Public Use
  Company Number: A0741131A

PATIENT
  Age: 55 Year
  Sex: Male

DRUGS (13)
  1. WELLBUTRIN SR [Suspect]
     Indication: DEPRESSION
     Dosage: 150MG UNKNOWN
     Route: 048
     Dates: start: 20030101, end: 20080615
  2. REQUIP [Suspect]
     Indication: RESTLESS LEGS SYNDROME
     Dosage: 5MG PER DAY
     Route: 048
     Dates: start: 20060101
  3. XANAX [Concomitant]
  4. SEROQUEL [Concomitant]
  5. BUSPIRONE HCL [Concomitant]
  6. CLOMIPRAMINE HCL [Concomitant]
  7. BUPROPION HCL [Concomitant]
  8. NEXIUM [Concomitant]
  9. ZYRTEC [Concomitant]
  10. SIMVASTATIN [Concomitant]
  11. QUINAPRIL [Concomitant]
  12. CARAFATE [Concomitant]
  13. WELCHOL [Concomitant]

REACTIONS (4)
  - DEPRESSION [None]
  - DIZZINESS [None]
  - DRUG INEFFECTIVE [None]
  - SOMNOLENCE [None]
